FAERS Safety Report 23919294 (Version 2)
Quarter: 2024Q3

REPORT INFORMATION
  Report Type: Spontaneous
  Country: JP (occurrence: JP)
  Receive Date: 20240530
  Receipt Date: 20240918
  Transmission Date: 20241017
  Serious: Yes (Life-Threatening, Hospitalization, Other)
  Sender: MERCK
  Company Number: JP-MSD-M2024-20013

PATIENT
  Age: 58 Year
  Sex: Female

DRUGS (3)
  1. KEYTRUDA [Suspect]
     Active Substance: PEMBROLIZUMAB
     Indication: Cervix carcinoma stage IV
     Dosage: 200 MILLIGRAM, Q3W
     Route: 041
     Dates: start: 202307
  2. CARBOPLATIN [Concomitant]
     Active Substance: CARBOPLATIN
     Indication: Cervix carcinoma stage IV
     Dosage: AUC5, Q3W
     Route: 041
     Dates: start: 202307, end: 202310
  3. PACLITAXEL [Concomitant]
     Active Substance: PACLITAXEL
     Indication: Cervix carcinoma stage IV
     Dosage: 175 MILLIGRAM, Q3W
     Route: 041
     Dates: start: 202307, end: 202310

REACTIONS (3)
  - Sepsis [Recovered/Resolved]
  - Pyelonephritis [Recovered/Resolved]
  - Stent placement [Unknown]

NARRATIVE: CASE EVENT DATE: 20240101
